FAERS Safety Report 8464170-0 (Version None)
Quarter: 2012Q2

REPORT INFORMATION
  Report Type: 
  Country: None (occurrence: None)
  Receive Date: 20120625
  Receipt Date: 20120621
  Transmission Date: 20120825
  Serious: Yes (Hospitalization, Other)
  Sender: FDA-Public Use
  Company Number: US-PFIZER INC-2012149728

PATIENT
  Sex: Female

DRUGS (8)
  1. VICODIN [Suspect]
  2. AMBRISENTAN [Suspect]
     Indication: PULMONARY HYPERTENSION
     Dosage: 10 MG, UNK
     Route: 048
     Dates: start: 20100730
  3. SEROQUEL [Suspect]
  4. EFFEXOR [Suspect]
  5. CELEXA [Suspect]
  6. GEODON [Suspect]
  7. XANAX [Suspect]
  8. LITHIUM CARBONATE [Suspect]
     Dosage: 10 MG, UNK
     Route: 048

REACTIONS (1)
  - SYNCOPE [None]
